FAERS Safety Report 19112518 (Version 1)
Quarter: 2021Q2

REPORT INFORMATION
  Report Type: Spontaneous
  Country: US (occurrence: US)
  Receive Date: 20210409
  Receipt Date: 20210409
  Transmission Date: 20210717
  Serious: Yes (Other)
  Sender: FDA-Public Use
  Company Number: US-HIKMA PHARMACEUTICALS USA INC.-US-H14001-21-54087

PATIENT
  Age: 57 Year
  Sex: Female

DRUGS (5)
  1. VINCRISTINE [Suspect]
     Active Substance: VINCRISTINE
     Indication: PRECURSOR T-LYMPHOBLASTIC LEUKAEMIA ACUTE
     Dosage: UNKNOWN
     Route: 065
  2. VENETOCLAX. [Suspect]
     Active Substance: VENETOCLAX
     Indication: PRECURSOR T-LYMPHOBLASTIC LEUKAEMIA ACUTE
     Dosage: UNKNOWN
     Route: 065
  3. CYCLOPHOSPHAMIDE. [Suspect]
     Active Substance: CYCLOPHOSPHAMIDE
     Indication: PRECURSOR T-LYMPHOBLASTIC LEUKAEMIA ACUTE
     Dosage: UNKNOWN
     Route: 065
  4. ADRIAMYCIN [Suspect]
     Active Substance: DOXORUBICIN HYDROCHLORIDE
     Indication: PRECURSOR T-LYMPHOBLASTIC LEUKAEMIA ACUTE
     Dosage: UNKNOWN
     Route: 065
  5. DEXAMETHASONE. [Suspect]
     Active Substance: DEXAMETHASONE
     Indication: PRECURSOR T-LYMPHOBLASTIC LEUKAEMIA ACUTE
     Dosage: UNKNOWN
     Route: 065

REACTIONS (2)
  - Neutropenia [Unknown]
  - Escherichia sepsis [Unknown]
